FAERS Safety Report 7618813-1 (Version None)
Quarter: 2011Q3

REPORT INFORMATION
  Report Type: 
  Country: None (occurrence: None)
  Receive Date: 20110718
  Receipt Date: 20110711
  Transmission Date: 20111222
  Serious: Yes (Hospitalization)
  Sender: FDA-Public Use
  Company Number: JP-CEPHALON-2011003737

PATIENT
  Age: 60 Year
  Sex: Male

DRUGS (2)
  1. BENDAMUSTINE HCL [Suspect]
     Indication: B-CELL LYMPHOMA
     Route: 042
     Dates: start: 20110315, end: 20110316
  2. RITUXIMAB [Concomitant]

REACTIONS (2)
  - SUBILEUS [None]
  - PANCREATITIS ACUTE [None]
